FAERS Safety Report 4964580-X (Version None)
Quarter: 2006Q1

REPORT INFORMATION
  Report Type: 
  Country: None (occurrence: None)
  Receive Date: 20060328
  Receipt Date: 20060315
  Transmission Date: 20060701
  Serious: Yes (Other)
  Sender: FDA-Public Use
  Company Number: 2006H004879

PATIENT
  Age: 83 Year
  Sex: Male

DRUGS (5)
  1. BUMINATE 25% [Suspect]
     Indication: HYPOALBUMINAEMIA
     Dosage: 50 ML; IVDRI
     Route: 041
     Dates: start: 20060303, end: 20060305
  2. BUMINATE 25% [Suspect]
     Indication: POLYURIA
     Dosage: 50 ML; IVDRI
     Route: 041
     Dates: start: 20060303, end: 20060305
  3. LASIX [Concomitant]
  4. LACTEC [Concomitant]
  5. DOPAMINE [Concomitant]

REACTIONS (2)
  - CARDIAC FAILURE [None]
  - PULMONARY OEDEMA [None]
